FAERS Safety Report 7286531-8 (Version None)
Quarter: 2011Q1

REPORT INFORMATION
  Report Type: 
  Country: None (occurrence: None)
  Receive Date: 20110131
  Receipt Date: 20110121
  Transmission Date: 20110831
  Serious: Yes (Other)
  Sender: FDA-Public Use
  Company Number: 2011SP003241

PATIENT
  Sex: Female

DRUGS (2)
  1. SAPHRIS [Suspect]
     Indication: BIPOLAR DISORDER
     Dosage: SL
     Route: 060
  2. SAPHRIS [Suspect]
     Indication: SCHIZOPHRENIA
     Dosage: SL
     Route: 060

REACTIONS (3)
  - RESTLESSNESS [None]
  - MANIA [None]
  - AGITATION [None]
